FAERS Safety Report 21255247 (Version 2)
Quarter: 2024Q4

REPORT INFORMATION
  Report Type: Spontaneous
  Country: US (occurrence: US)
  Receive Date: 20220825
  Receipt Date: 20241217
  Transmission Date: 20250115
  Serious: Yes (Hospitalization, Other)
  Sender: TEVA
  Company Number: US-TEVA-2022-US-2066894

PATIENT
  Age: 28 Year
  Sex: Female

DRUGS (1)
  1. LETROZOLE [Suspect]
     Active Substance: LETROZOLE
     Indication: Infertility female
     Route: 065

REACTIONS (4)
  - Abortion spontaneous [Unknown]
  - Drug-induced liver injury [Recovered/Resolved]
  - Maternal exposure during pregnancy [Unknown]
  - Cholestasis [Recovered/Resolved]
